FAERS Safety Report 18576833 (Version 1)
Quarter: 2020Q4

REPORT INFORMATION
  Report Type: Report from Study
  Country: US (occurrence: US)
  Receive Date: 20201203
  Receipt Date: 20201203
  Transmission Date: 20210114
  Serious: Yes (Other)
  Sender: FDA-Public Use
  Company Number: US-JNJFOC-A-US2019-193887

PATIENT
  Age: 61 Year
  Sex: Female
  Weight: 93.07 kg

DRUGS (8)
  1. UPTRAVI [Suspect]
     Active Substance: SELEXIPAG
     Indication: PULMONARY ARTERIAL HYPERTENSION
     Dosage: 1600 MCG, BID
     Route: 048
  2. GABAPENTIN. [Suspect]
     Active Substance: GABAPENTIN
     Indication: PRODUCT USED FOR UNKNOWN INDICATION
     Route: 065
  3. OXYGEN. [Concomitant]
     Active Substance: OXYGEN
     Dosage: 2 L/MIN OF OXYGEN AT NIGHT
  4. ELIQUIS [Concomitant]
     Active Substance: APIXABAN
  5. OXYGEN. [Concomitant]
     Active Substance: OXYGEN
     Dosage: 5 TO 6 L/MIN WITH ACTIVITIES
  6. AMBRISENTAN [Concomitant]
     Active Substance: AMBRISENTAN
  7. UPTRAVI [Suspect]
     Active Substance: SELEXIPAG
     Dosage: 1200 MCG, BID
     Route: 048
  8. UPTRAVI [Suspect]
     Active Substance: SELEXIPAG
     Dosage: 1000 MCG, BID
     Route: 048

REACTIONS (17)
  - Paraesthesia oral [Unknown]
  - Chest pain [Unknown]
  - Fatigue [Unknown]
  - Dizziness [Unknown]
  - Blood pressure decreased [Unknown]
  - Loss of consciousness [Unknown]
  - Aphasia [Unknown]
  - Vomiting [Unknown]
  - Dyspnoea exertional [Recovering/Resolving]
  - Headache [Unknown]
  - Pain in extremity [Unknown]
  - Nausea [Unknown]
  - Pain in jaw [Unknown]
  - Trismus [Recovering/Resolving]
  - Fall [Unknown]
  - Weight increased [Unknown]
  - Syncope [Unknown]
